FAERS Safety Report 8803342 (Version 3)
Quarter: 2013Q2

REPORT INFORMATION
  Report Type: Spontaneous
  Country: HR (occurrence: HR)
  Receive Date: 20120924
  Receipt Date: 20130408
  Transmission Date: 20140414
  Serious: Yes (Hospitalization, Other)
  Sender: FDA-Public Use
  Company Number: HR-JNJFOC-20120906179

PATIENT
  Sex: Male

DRUGS (4)
  1. RISPOLEPT CONSTA [Suspect]
     Indication: SCHIZOPHRENIA
     Route: 030
     Dates: start: 20120308
  2. RISPOLEPT CONSTA [Suspect]
     Indication: SCHIZOPHRENIA
     Route: 030
     Dates: start: 2011, end: 20120308
  3. DEPAKINE CHRONO [Suspect]
     Indication: PRODUCT USED FOR UNKNOWN INDICATION
     Route: 065
  4. DIAZEPAM [Concomitant]
     Route: 065

REACTIONS (3)
  - Psychotic disorder [Recovered/Resolved]
  - Alcohol abuse [Recovered/Resolved]
  - Suicidal ideation [Recovered/Resolved]
